FAERS Safety Report 4494026-X (Version None)
Quarter: 2004Q4

REPORT INFORMATION
  Report Type: 
  Country: None (occurrence: None)
  Receive Date: 20041105
  Receipt Date: 20041026
  Transmission Date: 20050328
  Serious: Yes (Other)
  Sender: FDA-Public Use
  Company Number: 200414134FR

PATIENT
  Age: 78 Year
  Sex: Male

DRUGS (8)
  1. KETEK [Suspect]
     Indication: SUPERINFECTION LUNG
     Route: 048
     Dates: start: 20041013
  2. CELESTENE [Concomitant]
     Dates: start: 20041013
  3. SURBRONC [Concomitant]
     Dates: start: 20041013
  4. BISOPROLOL FUMARATE [Concomitant]
  5. NICARDIPINE HCL [Concomitant]
  6. CORENITEC [Concomitant]
  7. PREVISCAN [Concomitant]
  8. METFORMIN HCL [Concomitant]

REACTIONS (1)
  - DEAFNESS BILATERAL [None]
